FAERS Safety Report 9688068 (Version 1)
Quarter: 2013Q4

REPORT INFORMATION
  Report Type: Spontaneous
  Country: DK (occurrence: DK)
  Receive Date: 20131114
  Receipt Date: 20131114
  Transmission Date: 20140711
  Serious: Yes (Death, Hospitalization)
  Sender: FDA-Public Use
  Company Number: DK-MYLANLABS-2013S1024961

PATIENT
  Age: 30 Year
  Sex: Female

DRUGS (5)
  1. RETEPLASE [Suspect]
     Indication: THROMBOLYSIS
     Route: 065
  2. TRANEXAMIC ACID [Suspect]
     Indication: MENORRHAGIA
     Route: 065
  3. PERLUTEX [Concomitant]
     Indication: MENORRHAGIA
     Route: 048
  4. METHYLPHENIDATE [Concomitant]
     Route: 065
  5. LAMOTRIGINE [Concomitant]
     Route: 065

REACTIONS (3)
  - Pulmonary embolism [Fatal]
  - Cardiac arrest [Fatal]
  - Haemorrhage [Not Recovered/Not Resolved]
